FAERS Safety Report 25277764 (Version 1)
Quarter: 2025Q2

REPORT INFORMATION
  Report Type: Spontaneous
  Country: CL (occurrence: CL)
  Receive Date: 20250507
  Receipt Date: 20250507
  Transmission Date: 20250717
  Serious: Yes (Hospitalization, Other)
  Sender: BAYER HEALTHCARE PHARMACEUTICALS INC.
  Company Number: CL-BAYER-2025A059110

PATIENT
  Age: 30 Year
  Sex: Female

DRUGS (1)
  1. KYLEENA [Suspect]
     Active Substance: LEVONORGESTREL
     Indication: Contraception
     Dosage: 17.5?G/DAY
     Route: 015
     Dates: start: 20240606, end: 20250422

REACTIONS (10)
  - Ectopic pregnancy with contraceptive device [Recovered/Resolved]
  - Abdominal pain [Not Recovered/Not Resolved]
  - Haemorrhage in pregnancy [Recovered/Resolved with Sequelae]
  - Abortion of ectopic pregnancy [Recovered/Resolved with Sequelae]
  - Haemoperitoneum [None]
  - Drug ineffective [None]
  - Injury [None]
  - Abdominal pain lower [None]
  - Infertility female [None]
  - Abdominal pain lower [None]

NARRATIVE: CASE EVENT DATE: 20250421
